FAERS Safety Report 25950092 (Version 2)
Quarter: 2025Q4

REPORT INFORMATION
  Report Type: Spontaneous
  Country: US (occurrence: US)
  Receive Date: 20251022
  Receipt Date: 20251105
  Transmission Date: 20260117
  Serious: No
  Sender: ARDELYX
  Company Number: US-ARDELYX-2025ARDX007769

PATIENT
  Sex: Female

DRUGS (1)
  1. IBSRELA [Suspect]
     Active Substance: TENAPANOR HYDROCHLORIDE
     Indication: Irritable bowel syndrome
     Dosage: 50 MG, BID (1 TABLET BY MOUTH TWO TIMES A DAY)
     Route: 048
     Dates: start: 2025

REACTIONS (1)
  - Bladder catheterisation [Unknown]

NARRATIVE: CASE EVENT DATE: 20250101
